FAERS Safety Report 21098646 (Version 1)
Quarter: 2022Q3

REPORT INFORMATION
  Report Type: Spontaneous
  Country: PK (occurrence: PK)
  Receive Date: 20220719
  Receipt Date: 20220719
  Transmission Date: 20221027
  Serious: No
  Sender: FDA-Public Use
  Company Number: PK-ALKEM LABORATORIES LIMITED-PK-ALKEM-2022-03512

PATIENT
  Sex: Female

DRUGS (2)
  1. NIFEDIPINE [Suspect]
     Active Substance: NIFEDIPINE
     Indication: Gestational hypertension
     Dosage: 10 MILLIGRAM INITIALLY
     Route: 048
  2. NIFEDIPINE [Suspect]
     Active Substance: NIFEDIPINE
     Dosage: 20 MILLIGRAM, EVERY 20 MINUTES FOR UP TO MAXIMUM OF 5 DOSES OR UNTIL TARGET BP ACHIEVED
     Route: 048

REACTIONS (1)
  - Exposure during pregnancy [Unknown]
